FAERS Safety Report 6016728-6 (Version None)
Quarter: 2008Q4

REPORT INFORMATION
  Report Type: 
  Country: None (occurrence: None)
  Receive Date: 20081218
  Receipt Date: 20081210
  Transmission Date: 20090506
  Serious: Yes (Hospitalization, Other)
  Sender: FDA-Public Use
  Company Number: SPV1-2008-02730

PATIENT
  Age: 19 Year
  Sex: Male
  Weight: 54.4 kg

DRUGS (5)
  1. ADDERALL XR 10 [Suspect]
     Indication: ATTENTION DEFICIT/HYPERACTIVITY DISORDER
     Dosage: 30 MG, 1X/DAY:QD, ORAL
     Route: 048
     Dates: start: 20070101, end: 20080601
  2. ADDERALL XR 10 [Suspect]
     Indication: ATTENTION DEFICIT/HYPERACTIVITY DISORDER
     Dosage: 30 MG, 1X/DAY:QD, ORAL
     Route: 048
     Dates: start: 20080101
  3. SEROQUEL [Concomitant]
  4. LEVOTHYROXINE SODIUM [Concomitant]
  5. ADDERALL 10 [Concomitant]

REACTIONS (10)
  - AMPHETAMINES POSITIVE [None]
  - BASEDOW'S DISEASE [None]
  - DYSPEPSIA [None]
  - HEART RATE INCREASED [None]
  - HEPATITIS C [None]
  - JAUNDICE [None]
  - LOSS OF CONSCIOUSNESS [None]
  - OSTEOARTHRITIS [None]
  - OSTEOPOROSIS [None]
  - OVERDOSE [None]
